FAERS Safety Report 20062664 (Version 1)
Quarter: 2021Q4

REPORT INFORMATION
  Report Type: Spontaneous
  Country: FR (occurrence: FR)
  Receive Date: 20211112
  Receipt Date: 20211112
  Transmission Date: 20220303
  Serious: Yes (Hospitalization)
  Sender: FDA-Public Use
  Company Number: None

PATIENT
  Age: 58 Year
  Sex: Male
  Weight: 80 kg

DRUGS (9)
  1. OMEPRAZOLE [Suspect]
     Active Substance: OMEPRAZOLE
     Indication: Product used for unknown indication
     Dosage: THERAPY START DATE :ASKU, 20 MG
     Route: 048
     Dates: end: 20210926
  2. LEVOFLOXACIN [Suspect]
     Active Substance: LEVOFLOXACIN
     Indication: Urinary tract infection
     Dosage: THERAPY START DATE :ASKU,
     Route: 048
     Dates: start: 20210910
  3. TRILEPTAL [Suspect]
     Active Substance: OXCARBAZEPINE
     Indication: Neuralgia
     Dosage: THERAPY START DATE :ASKU,1500 MG
     Route: 048
  4. DITROPAN [Suspect]
     Active Substance: OXYBUTYNIN CHLORIDE
     Indication: Quadriparesis
     Dosage: THERAPY START DATE :ASKU,3 DF
     Route: 048
  5. MARINOL [Suspect]
     Active Substance: DRONABINOL
     Indication: Pain
     Dosage: SCORED TABLET, 8 DF
     Route: 048
     Dates: start: 202105, end: 20210926
  6. OXAZEPAM [Suspect]
     Active Substance: OXAZEPAM
     Indication: Depression
     Dosage: 400 MG,THERAPY START DATE :ASKU, BREAKABLE TABLET
     Route: 048
  7. MILNACIPRAN HYDROCHLORIDE [Suspect]
     Active Substance: MILNACIPRAN HYDROCHLORIDE
     Indication: Pain
     Dosage: 100 MG
     Route: 048
     Dates: start: 202109, end: 20210926
  8. ZOLPIDEM [Suspect]
     Active Substance: ZOLPIDEM TARTRATE
     Indication: Sleep disorder
     Dosage: 7.5 MG,THERAPY START DATE :ASKU, THERAPY END DATE: ASKU
     Route: 048
  9. NIFEDIPINE [Concomitant]
     Active Substance: NIFEDIPINE
     Indication: Product used for unknown indication
     Dosage: 20 MG,THERAPY START DATE :ASKU,
     Route: 048
     Dates: end: 20210926

REACTIONS (3)
  - Seizure [Recovered/Resolved]
  - Hyponatraemia [Recovered/Resolved]
  - Confusional state [Recovered/Resolved]

NARRATIVE: CASE EVENT DATE: 20210801
